FAERS Safety Report 10775692 (Version 1)
Quarter: 2015Q1

REPORT INFORMATION
  Report Type: Spontaneous
  Country: US (occurrence: None)
  Receive Date: 20150206
  Receipt Date: 20150206
  Transmission Date: 20150721
  Serious: Yes (Other)
  Sender: FDA-Public Use
  Company Number: None

PATIENT
  Age: 85 Year
  Sex: Male
  Weight: 70.31 kg

DRUGS (4)
  1. ALBUTEROL. [Concomitant]
     Active Substance: ALBUTEROL
  2. SYMBACORT [Concomitant]
  3. LEVOFLOXACIN 750 MG (SUBSTITUTED FOR LEVAQUIN) [Suspect]
     Active Substance: LEVOFLOXACIN
     Indication: PRODUCTIVE COUGH
     Dosage: NE TAB. BY MOUTH ONCE DAILY FOR 7 DAYS
     Dates: start: 20150116, end: 20150118
  4. SINEMET [Concomitant]
     Active Substance: CARBIDOPA\LEVODOPA

REACTIONS (1)
  - Tremor [None]

NARRATIVE: CASE EVENT DATE: 20150116
